FAERS Safety Report 20532036 (Version 2)
Quarter: 2023Q1

REPORT INFORMATION
  Report Type: Report from Study
  Country: US (occurrence: US)
  Receive Date: 20220301
  Receipt Date: 20230207
  Transmission Date: 20230418
  Serious: No
  Sender: FDA-Public Use
  Company Number: US-AMRYT PHARMACEUTICALS DAC-AEGR005194

PATIENT
  Sex: Male

DRUGS (2)
  1. MYALEPT [Suspect]
     Active Substance: METRELEPTIN
     Indication: Congenital generalised lipodystrophy
     Dosage: 2.5 MILLIGRAM, QD
     Route: 058
     Dates: start: 20210512
  2. BACTERIOSTATIC WATER [Concomitant]
     Active Substance: WATER
     Indication: Product used for unknown indication

REACTIONS (5)
  - Dyspepsia [Recovering/Resolving]
  - Foot operation [Recovered/Resolved]
  - Blood triglycerides abnormal [Recovering/Resolving]
  - Impaired healing [Unknown]
  - Weight decreased [Unknown]
